FAERS Safety Report 9555015 (Version 2)
Quarter: 2013Q4

REPORT INFORMATION
  Report Type: Spontaneous
  Country: ES (occurrence: ES)
  Receive Date: 20130926
  Receipt Date: 20131112
  Transmission Date: 20140711
  Serious: Yes (Other)
  Sender: FDA-Public Use
  Company Number: ES-ROCHE-1280828

PATIENT
  Sex: Female

DRUGS (2)
  1. XOLAIR [Suspect]
     Indication: URTICARIA CHRONIC
     Route: 065
     Dates: end: 20130910
  2. XOLAIR [Suspect]
     Indication: OFF LABEL USE

REACTIONS (2)
  - Systemic lupus erythematosus [Recovering/Resolving]
  - Off label use [Unknown]
